FAERS Safety Report 19420031 (Version 2)
Quarter: 2021Q2

REPORT INFORMATION
  Report Type: Spontaneous
  Country: GB (occurrence: GB)
  Receive Date: 20210615
  Receipt Date: 20210625
  Transmission Date: 20210717
  Serious: Yes (Other)
  Sender: FDA-Public Use
  Company Number: GB-MYLANLABS-2021M1034751

PATIENT
  Age: 73 Year
  Sex: Female
  Weight: 50 kg

DRUGS (19)
  1. MELPHALAN. [Suspect]
     Active Substance: MELPHALAN
     Dosage: 14 MG, QD
     Dates: start: 20171107, end: 20171110
  2. SODIUM CHLORIDE. [Suspect]
     Active Substance: SODIUM CHLORIDE
     Dosage: UNK (STOP DATE: NOV?2017); ;
     Route: 041
     Dates: start: 20171107, end: 201711
  3. RAMIPRIL. [Suspect]
     Active Substance: RAMIPRIL
     Indication: PRODUCT USED FOR UNKNOWN INDICATION
     Dosage: 10 MG, QD
     Route: 065
  4. SODIUM CHLORIDE. [Suspect]
     Active Substance: SODIUM CHLORIDE
     Indication: MEDICATION DILUTION
     Dosage: UNK; ;
     Route: 041
     Dates: start: 20171110, end: 20171114
  5. SERTRALINE [Suspect]
     Active Substance: SERTRALINE HYDROCHLORIDE
     Indication: PRODUCT USED FOR UNKNOWN INDICATION
     Dosage: 50 MG, QD
  6. METOCLOPRAMIDE. [Suspect]
     Active Substance: METOCLOPRAMIDE
     Indication: PRODUCT USED FOR UNKNOWN INDICATION
     Dosage: 10 MILLIGRAM, PRN, AS NECESSARY
     Route: 065
  7. DEXAMETHASONE. [Suspect]
     Active Substance: DEXAMETHASONE
     Indication: PRODUCT USED FOR UNKNOWN INDICATION
     Dosage: 20 MG, QD
     Dates: start: 20171102, end: 20171106
  8. DEXAMETHASONE. [Suspect]
     Active Substance: DEXAMETHASONE
     Dosage: 20 MILLIGRAM
     Route: 065
  9. FENTANYL. [Suspect]
     Active Substance: FENTANYL
     Indication: PRODUCT USED FOR UNKNOWN INDICATION
     Dosage: UNK (THERAPY ONGOING: YES); ;
     Route: 065
     Dates: start: 20171108
  10. BENDROFLUMETHIAZIDE [Suspect]
     Active Substance: BENDROFLUMETHIAZIDE
     Indication: PRODUCT USED FOR UNKNOWN INDICATION
     Dosage: 2.5 MG, QD
     Route: 065
  11. BORTEZOMIB. [Suspect]
     Active Substance: BORTEZOMIB
     Dosage: 1.8 MG (STOP DATE: NOV?2017);
     Route: 058
     Dates: start: 20171107, end: 201711
  12. BORTEZOMIB. [Suspect]
     Active Substance: BORTEZOMIB
     Dosage: 1.8 MG;
     Route: 058
     Dates: start: 20171110, end: 20171114
  13. PREDNISONE. [Suspect]
     Active Substance: PREDNISONE
     Indication: PLASMA CELL LEUKAEMIA
     Dosage: 70 MG, QD
     Dates: start: 20171103, end: 20171103
  14. SODIUM CHLORIDE. [Suspect]
     Active Substance: SODIUM CHLORIDE
     Dosage: UNK; ;
     Route: 041
     Dates: start: 20171103, end: 20171106
  15. ALLOPURINOL. [Suspect]
     Active Substance: ALLOPURINOL
     Dosage: 300 MG, QD (THERAPY IS ONGOING)
     Route: 065
     Dates: start: 20171120
  16. BORTEZOMIB. [Suspect]
     Active Substance: BORTEZOMIB
     Indication: PLASMA CELL LEUKAEMIA
     Dosage: 1.8 MG;
     Route: 058
     Dates: start: 20171103, end: 20171103
  17. MELPHALAN. [Suspect]
     Active Substance: MELPHALAN
     Indication: PLASMA CELL LEUKAEMIA
     Dosage: 14 MG, QD
     Dates: start: 20171103, end: 20171103
  18. ALLOPURINOL. [Suspect]
     Active Substance: ALLOPURINOL
     Indication: PRODUCT USED FOR UNKNOWN INDICATION
     Dosage: 30 MG, QD
     Route: 065
     Dates: start: 20171104, end: 20171120
  19. OMEPRAZOLE. [Suspect]
     Active Substance: OMEPRAZOLE
     Indication: PRODUCT USED FOR UNKNOWN INDICATION
     Dosage: 20 MG, QD
     Route: 048

REACTIONS (13)
  - Drug abuse [Unknown]
  - Disturbance in social behaviour [Unknown]
  - Hallucination [Unknown]
  - Confusional state [Unknown]
  - Abnormal behaviour [Unknown]
  - Paranoia [Unknown]
  - Off label use [Unknown]
  - Medication error [Unknown]
  - Intentional product misuse [Unknown]
  - Disorientation [Unknown]
  - Emotional distress [Unknown]
  - Agitation [Unknown]
  - Product use in unapproved indication [Unknown]

NARRATIVE: CASE EVENT DATE: 20171107
